FAERS Safety Report 7935817-X (Version None)
Quarter: 2011Q4

REPORT INFORMATION
  Report Type: 
  Country: None (occurrence: None)
  Receive Date: 20111123
  Receipt Date: 20111115
  Transmission Date: 20120403
  Serious: No
  Sender: FDA-Public Use
  Company Number: US-JNJFOC-20111107152

PATIENT
  Sex: Male
  Weight: 85.73 kg

DRUGS (17)
  1. FENTANYL-100 [Suspect]
     Indication: PAIN IN EXTREMITY
     Route: 062
     Dates: start: 20110901
  2. FENTANYL-100 [Suspect]
     Indication: SPINAL OSTEOARTHRITIS
     Route: 062
  3. FENTANYL-100 [Suspect]
     Indication: BACK PAIN
     Route: 062
     Dates: start: 20110901
  4. CYMBALTA [Concomitant]
     Indication: DEPRESSION
     Route: 048
  5. FENTANYL-100 [Suspect]
     Indication: MUSCLE SPASMS
     Route: 062
  6. TRUVADA [Concomitant]
     Indication: HIV TEST POSITIVE
     Route: 048
  7. FENTANYL-100 [Suspect]
     Indication: BACK PAIN
     Route: 062
  8. FENTANYL-100 [Suspect]
     Indication: ROAD TRAFFIC ACCIDENT
     Route: 062
     Dates: start: 20110901
  9. FENTANYL-100 [Suspect]
     Indication: SPINAL OSTEOARTHRITIS
     Route: 062
     Dates: start: 20110901
  10. FENTANYL-100 [Suspect]
     Indication: MUSCLE SPASMS
     Route: 062
     Dates: start: 20110901
  11. FENTANYL-100 [Suspect]
     Indication: ROAD TRAFFIC ACCIDENT
     Route: 062
  12. FENTANYL-100 [Suspect]
     Indication: EXOSTOSIS
     Route: 062
  13. NORVIR [Concomitant]
     Indication: HIV TEST POSITIVE
     Route: 048
  14. CYMBALTA [Concomitant]
     Indication: PAIN
     Route: 048
  15. FENTANYL-100 [Suspect]
     Indication: EXOSTOSIS
     Route: 062
     Dates: start: 20110901
  16. FENTANYL-100 [Suspect]
     Indication: PAIN IN EXTREMITY
     Route: 062
  17. LEXIVA [Concomitant]
     Indication: HIV TEST POSITIVE
     Route: 048

REACTIONS (9)
  - PRODUCT QUALITY ISSUE [None]
  - HYPERHIDROSIS [None]
  - NERVOUSNESS [None]
  - AGITATION [None]
  - PAIN [None]
  - GENERAL PHYSICAL HEALTH DETERIORATION [None]
  - DRUG DOSE OMISSION [None]
  - MOOD ALTERED [None]
  - WITHDRAWAL SYNDROME [None]
